FAERS Safety Report 4749653-9 (Version None)
Quarter: 2005Q3

REPORT INFORMATION
  Report Type: 
  Country: None (occurrence: None)
  Receive Date: 20050822
  Receipt Date: 20050407
  Transmission Date: 20060218
  Serious: Yes (Hospitalization)
  Sender: FDA-Public Use
  Company Number: US-MERCK-0504USA00992

PATIENT
  Age: 50 Year
  Sex: Female
  Weight: 64 kg

DRUGS (8)
  1. VIOXX [Suspect]
     Indication: SPONDYLITIS
     Route: 048
     Dates: start: 19990101, end: 20030101
  2. VIOXX [Suspect]
     Route: 048
  3. VIOXX [Suspect]
     Route: 048
  4. VIOXX [Suspect]
     Indication: ARTHRITIS
     Route: 048
     Dates: start: 19990101, end: 20030101
  5. VIOXX [Suspect]
     Route: 048
  6. VIOXX [Suspect]
     Route: 048
  7. CELEBREX [Concomitant]
     Route: 065
     Dates: start: 20000101, end: 20030101
  8. BENICAR HCT [Concomitant]
     Route: 065

REACTIONS (12)
  - ANGINA PECTORIS [None]
  - ATHEROSCLEROSIS [None]
  - BLOOD PRESSURE INADEQUATELY CONTROLLED [None]
  - CARDIAC DISORDER [None]
  - CORONARY ARTERY DISEASE [None]
  - DEPRESSION [None]
  - DYSPEPSIA [None]
  - GASTROOESOPHAGEAL REFLUX DISEASE [None]
  - HYPERSENSITIVITY [None]
  - OVERDOSE [None]
  - POST-TRAUMATIC STRESS DISORDER [None]
  - SINUSITIS [None]
